FAERS Safety Report 9859018 (Version 3)
Quarter: 2014Q1

REPORT INFORMATION
  Report Type: Spontaneous
  Country: US (occurrence: US)
  Receive Date: 20140131
  Receipt Date: 20140324
  Transmission Date: 20141002
  Serious: Yes (Other)
  Sender: FDA-Public Use
  Company Number: US-PFIZER INC-2014028178

PATIENT
  Age: 64 Year
  Sex: Male

DRUGS (1)
  1. FLECTOR [Suspect]
     Dosage: UNK (2-3 TIMES IN MAY2012 )
     Dates: start: 201205

REACTIONS (2)
  - Spinal disorder [Unknown]
  - Pain [Unknown]
